FAERS Safety Report 8558552-6 (Version None)
Quarter: 2012Q3

REPORT INFORMATION
  Report Type: 
  Country: None (occurrence: None)
  Receive Date: 20120801
  Receipt Date: 20120717
  Transmission Date: 20120928
  Serious: No
  Sender: FDA-Public Use
  Company Number: US-ASTRAZENECA-2012SE50291

PATIENT
  Age: 74 Year
  Sex: Female

DRUGS (6)
  1. OXYBUTYNIN [Concomitant]
  2. NEXIUM [Suspect]
     Route: 048
  3. METOPROLOL TARTRATE [Concomitant]
  4. ARMOR THYROID [Concomitant]
  5. NEXIUM [Suspect]
     Route: 048
  6. VITAMIN D [Concomitant]

REACTIONS (1)
  - ADVERSE EVENT [None]
